FAERS Safety Report 12770111 (Version 2)
Quarter: 2016Q4

REPORT INFORMATION
  Report Type: Spontaneous
  Country: US (occurrence: US)
  Receive Date: 20160922
  Receipt Date: 20161014
  Transmission Date: 20170207
  Serious: No
  Sender: FDA-Public Use
  Company Number: US-PFIZER INC-2016437958

PATIENT
  Age: 97 Year
  Sex: Female
  Weight: 58 kg

DRUGS (3)
  1. ICAPS [Suspect]
     Active Substance: MINERALS\VITAMINS
     Dosage: UNK
  2. XALATAN [Suspect]
     Active Substance: LATANOPROST
     Indication: OPEN ANGLE GLAUCOMA
     Dosage: 1 DROP IN BOTH EYES, 1X/DAY AT BEDTIME
     Dates: start: 20160105
  3. BABY ASPIRIN [Concomitant]
     Active Substance: ASPIRIN
     Dosage: UNK

REACTIONS (1)
  - Hypersensitivity [Unknown]
